FAERS Safety Report 19076414 (Version 2)
Quarter: 2021Q2

REPORT INFORMATION
  Report Type: Spontaneous
  Country: US (occurrence: US)
  Receive Date: 20210331
  Receipt Date: 20210518
  Transmission Date: 20210717
  Serious: No
  Sender: FDA-Public Use
  Company Number: US-JNJFOC-20210350423

PATIENT
  Age: 82 Year
  Sex: Male
  Weight: 81.72 kg

DRUGS (9)
  1. ERLEADA [Suspect]
     Active Substance: APALUTAMIDE
     Indication: PROSTATE CANCER
     Route: 048
     Dates: start: 20210305, end: 20210325
  2. ELIGARD [Concomitant]
     Active Substance: LEUPROLIDE ACETATE
  3. PRAVACHOL [Concomitant]
     Active Substance: PRAVASTATIN SODIUM
  4. ERLEADA [Suspect]
     Active Substance: APALUTAMIDE
     Route: 048
  5. VITAMIN D3 [Concomitant]
     Active Substance: CHOLECALCIFEROL
  6. LOSARTAN. [Concomitant]
     Active Substance: LOSARTAN
  7. GABAPENTINE [Concomitant]
     Active Substance: GABAPENTIN
  8. METFORMIN [Concomitant]
     Active Substance: METFORMIN HYDROCHLORIDE
  9. LEVOTHYROXINE. [Concomitant]
     Active Substance: LEVOTHYROXINE

REACTIONS (2)
  - Rash [Recovering/Resolving]
  - Candida infection [Recovered/Resolved with Sequelae]

NARRATIVE: CASE EVENT DATE: 20210320
